FAERS Safety Report 7666517-1 (Version None)
Quarter: 2011Q3

REPORT INFORMATION
  Report Type: 
  Country: None (occurrence: None)
  Receive Date: 20110806
  Receipt Date: 20110420
  Transmission Date: 20111222
  Serious: No
  Sender: FDA-Public Use
  Company Number: US-ABBOTT-11P-163-0720474-00

PATIENT
  Sex: Female
  Weight: 98.972 kg

DRUGS (21)
  1. AMITRIPTYLINE HCL [Concomitant]
     Indication: PRURITUS
  2. LIPITOR [Concomitant]
     Indication: PRODUCT USED FOR UNKNOWN INDICATION
  3. CALCIUM CARBONATE [Concomitant]
     Indication: PRODUCT USED FOR UNKNOWN INDICATION
  4. COQ10 [Concomitant]
     Indication: PRODUCT USED FOR UNKNOWN INDICATION
  5. ASPIRIN [Concomitant]
     Indication: PRODUCT USED FOR UNKNOWN INDICATION
  6. SYNTHROID [Concomitant]
     Indication: PRODUCT USED FOR UNKNOWN INDICATION
  7. VIT C [Concomitant]
     Indication: PRODUCT USED FOR UNKNOWN INDICATION
  8. NIASPAN [Suspect]
     Dates: start: 20110401
  9. NIASPAN [Suspect]
  10. AMITRIPTYLINE HCL [Concomitant]
     Indication: ECZEMA
  11. PRILOSEC [Concomitant]
     Indication: PRODUCT USED FOR UNKNOWN INDICATION
  12. COSAMINE DS [Concomitant]
     Indication: PRODUCT USED FOR UNKNOWN INDICATION
  13. BUSPIRONE HCL [Concomitant]
     Indication: ANXIETY
     Dosage: 1/2 IN THE MORNING AND NIGHT
  14. CARVEDILOL [Concomitant]
     Indication: HYPERTENSION
  15. DICLYCLOMINE [Concomitant]
     Indication: IRRITABLE BOWEL SYNDROME
  16. VAGAFEM [Concomitant]
     Indication: PRODUCT USED FOR UNKNOWN INDICATION
  17. NIASPAN [Suspect]
     Indication: BLOOD CHOLESTEROL
     Dates: start: 20110101
  18. CYMBALTA [Concomitant]
     Indication: DEPRESSION
  19. ALLERGY SHOT [Concomitant]
     Indication: HYPERSENSITIVITY
  20. DIOVAN HCT [Concomitant]
     Indication: PRODUCT USED FOR UNKNOWN INDICATION
  21. XYZAL [Concomitant]
     Indication: PRURITUS

REACTIONS (1)
  - PRURITUS [None]
